FAERS Safety Report 22385991 (Version 1)
Quarter: 2023Q2

REPORT INFORMATION
  Report Type: Spontaneous
  Country: GB (occurrence: GB)
  Receive Date: 20230530
  Receipt Date: 20230530
  Transmission Date: 20230721
  Serious: Yes (Other)
  Sender: FDA-Public Use
  Company Number: None

PATIENT
  Sex: Male

DRUGS (1)
  1. UNSPECIFIED INGREDIENT [Suspect]
     Active Substance: UNSPECIFIED INGREDIENT
     Indication: Product used for unknown indication
     Dosage: UNK, SIX ROUNDS

REACTIONS (6)
  - Thrombosis [Unknown]
  - Mood swings [Unknown]
  - Quality of life decreased [Unknown]
  - Oesophageal disorder [Unknown]
  - Bone pain [Unknown]
  - Drug ineffective [Unknown]
